FAERS Safety Report 8502632-8 (Version None)
Quarter: 2012Q3

REPORT INFORMATION
  Report Type: 
  Country: None (occurrence: None)
  Receive Date: 20120711
  Receipt Date: 20120704
  Transmission Date: 20120928
  Serious: Yes (Hospitalization, Other)
  Sender: FDA-Public Use
  Company Number: JP-PFIZER INC-2012160672

PATIENT
  Age: 57 Year
  Sex: Male

DRUGS (2)
  1. LYRICA [Suspect]
     Indication: PAIN IN EXTREMITY
  2. LYRICA [Suspect]
     Indication: DIABETIC NEUROPATHY
     Dosage: 25 MG DAILY
     Route: 048
     Dates: start: 20110609, end: 20110812

REACTIONS (1)
  - CEREBRAL HAEMORRHAGE [None]
